FAERS Safety Report 7425987-4 (Version None)
Quarter: 2011Q2

REPORT INFORMATION
  Report Type: 
  Country: None (occurrence: None)
  Receive Date: 20110420
  Receipt Date: 20110412
  Transmission Date: 20111010
  Serious: Yes (Other)
  Sender: FDA-Public Use
  Company Number: US-B.I. PHARMACEUTICALS,INC./RIDGEFIELD-2011-BP-05728BP

PATIENT
  Age: 91 Year
  Sex: Female
  Weight: 46.72 kg

DRUGS (5)
  1. CARDIZEM CD [Concomitant]
     Dosage: 180 MG
  2. LOPRESSOR [Concomitant]
     Dosage: 100 MG
  3. PRADAXA [Suspect]
     Indication: ATRIAL FIBRILLATION
     Dosage: 300 MG
     Dates: start: 20101108, end: 20110131
  4. SIMVASTATIN [Concomitant]
     Dosage: 40 MG
  5. LISINOPRIL [Concomitant]
     Dosage: 2.5 MG

REACTIONS (3)
  - CARDIAC FAILURE CONGESTIVE [None]
  - FALL [None]
  - ASTHENIA [None]
